FAERS Safety Report 8025124-1 (Version None)
Quarter: 2012Q1

REPORT INFORMATION
  Report Type: 
  Country: None (occurrence: None)
  Receive Date: 20120105
  Receipt Date: 20120103
  Transmission Date: 20120608
  Serious: Yes (Hospitalization)
  Sender: FDA-Public Use
  Company Number: CO-ROCHE-770572

PATIENT
  Sex: Female
  Weight: 85.4 kg

DRUGS (12)
  1. VINCRISTINE [Suspect]
     Indication: DIFFUSE LARGE B-CELL LYMPHOMA
     Dosage: ROUTE TAKEN FROM PROTOCOL
     Route: 042
  2. DIPHENHYDRAMINE HCL [Concomitant]
  3. CYCLOPHOSPHAMIDE [Suspect]
     Indication: DIFFUSE LARGE B-CELL LYMPHOMA
     Dosage: ROUTE TAKEN (FROM PROTOCOL)
     Route: 042
  4. PREDNISONE TAB [Suspect]
     Indication: DIFFUSE LARGE B-CELL LYMPHOMA
     Dosage: DAY 1-5; EVERY 21 DAYS
     Route: 048
  5. ACETAMINOPHEN [Concomitant]
  6. TRAMADOL HCL [Concomitant]
  7. DOXORUBICIN HCL [Suspect]
     Indication: DIFFUSE LARGE B-CELL LYMPHOMA
     Dosage: ROUTE TAKEN (FROM PROTOCOL)
     Route: 042
  8. VERAPAMIL [Concomitant]
  9. OMEPRAZOLE [Concomitant]
  10. AVASTIN [Suspect]
     Indication: DIFFUSE LARGE B-CELL LYMPHOMA
     Dosage: DATE OF LAST DOSE PRIOR TO SAE: 28 MAY 2010; FORM: LIQUID FREQUENCY:ONE DOSES
     Route: 042
  11. METOCLOPRAMIDE [Concomitant]
  12. MABTHERA [Suspect]
     Indication: DIFFUSE LARGE B-CELL LYMPHOMA
     Dosage: FORM: INFUSION (FROM PROTOCOL)
     Route: 042

REACTIONS (1)
  - LYMPHADENOPATHY [None]
